FAERS Safety Report 8880767 (Version 1)
Quarter: 2012Q4

REPORT INFORMATION
  Report Type: 
  Country: FR (occurrence: FR)
  Receive Date: 20121101
  Receipt Date: 20121101
  Transmission Date: 20130627
  Serious: Yes (Hospitalization)
  Sender: FDA-Public Use
  Company Number: FR-GLAXOSMITHKLINE-B0840144A

PATIENT
  Age: 43 Year
  Sex: Male
  Weight: 55 kg

DRUGS (5)
  1. DEROXAT [Suspect]
     Indication: DEPRESSION
     Dosage: 20MG Per day
     Route: 048
  2. COUMADINE [Suspect]
     Indication: CARDIAC VALVE PROSTHESIS USER
     Dosage: 1UNIT Per day
     Route: 048
     Dates: start: 20120521, end: 20120930
  3. PAROXETINE [Suspect]
     Indication: DEPRESSION
     Route: 065
     Dates: start: 2000, end: 20120317
  4. HEPARIN [Concomitant]
     Route: 065
  5. CITALOPRAM [Concomitant]
     Route: 065
     Dates: end: 20120317

REACTIONS (3)
  - Muscle haemorrhage [Not Recovered/Not Resolved]
  - Inflammation [Unknown]
  - Drug interaction [Unknown]
